FAERS Safety Report 9757927 (Version 2)
Quarter: 2013Q4

REPORT INFORMATION
  Report Type: Report from Study
  Country: US (occurrence: US)
  Receive Date: 20131216
  Receipt Date: 20131218
  Transmission Date: 20140711
  Serious: Yes (Hospitalization)
  Sender: FDA-Public Use
  Company Number: US-JNJFOC-20131203039

PATIENT
  Age: 60 Year
  Sex: Male
  Weight: 83.92 kg

DRUGS (1)
  1. USTEKINUMAB [Suspect]
     Indication: PSORIASIS
     Route: 058
     Dates: start: 201101, end: 201212

REACTIONS (1)
  - Staphylococcal infection [Recovered/Resolved]
